FAERS Safety Report 21042482 (Version 1)
Quarter: 2022Q3

REPORT INFORMATION
  Report Type: Spontaneous
  Country: RU (occurrence: RU)
  Receive Date: 20220705
  Receipt Date: 20220705
  Transmission Date: 20221026
  Serious: Yes (Death, Hospitalization)
  Sender: FDA-Public Use
  Company Number: RU-STRIDES ARCOLAB LIMITED-2022SP008201

PATIENT
  Age: 3 Year
  Sex: Male

DRUGS (6)
  1. CARBOPLATIN [Suspect]
     Active Substance: CARBOPLATIN
     Indication: Retinoblastoma
     Dosage: 1250 MILLIGRAM/SQ. METER, CYCLICAL, RECEIVED 5 COURSES
     Route: 065
  2. ETOPOSIDE [Suspect]
     Active Substance: ETOPOSIDE
     Indication: Retinoblastoma
     Dosage: 1750 MILLIGRAM/SQ. METER, CYCLICAL, RECEIVED 5 COURSES
     Route: 065
  3. CYCLOPHOSPHAMIDE [Suspect]
     Active Substance: CYCLOPHOSPHAMIDE
     Indication: Retinoblastoma
     Dosage: 6000 MILLIGRAM/SQ. METER, CYCLICAL,RECEIVED 5 COURSES
     Route: 065
  4. METHOTREXATE [Suspect]
     Active Substance: METHOTREXATE
     Indication: Retinoblastoma
     Dosage: UNK, CYCLICAL,RECEIVED 5 COURSES
     Route: 037
  5. PREDNISOLONE [Suspect]
     Active Substance: PREDNISOLONE
     Indication: Retinoblastoma
     Dosage: UNK, CYCLICAL,RECEIVED 5 COURSES
     Route: 037
  6. THIOTEPA [Suspect]
     Active Substance: THIOTEPA
     Indication: Retinoblastoma
     Dosage: UNK, CYCLICAL,RECEIVED 5 COURSES
     Route: 037

REACTIONS (7)
  - Neutropenic colitis [Recovered/Resolved]
  - Stomatitis [Recovered/Resolved]
  - Drug ineffective for unapproved indication [Fatal]
  - Decreased appetite [Recovered/Resolved]
  - Nausea [Recovered/Resolved]
  - Vomiting [Recovered/Resolved]
  - Febrile neutropenia [Recovered/Resolved]
